FAERS Safety Report 12074626 (Version 2)
Quarter: 2016Q1

REPORT INFORMATION
  Report Type: Spontaneous
  Country: US (occurrence: US)
  Receive Date: 20160212
  Receipt Date: 20160302
  Transmission Date: 20160526
  Serious: Yes (Hospitalization, Other)
  Sender: FDA-Public Use
  Company Number: US-JAZZ-JPI-P-032109

PATIENT
  Age: 63 Year
  Sex: Female

DRUGS (7)
  1. XYREM [Suspect]
     Active Substance: SODIUM OXYBATE
     Dosage: 4 G, FIRST DOSE
     Route: 048
     Dates: start: 200702, end: 200707
  2. XYREM [Suspect]
     Active Substance: SODIUM OXYBATE
     Dosage: 4 G, SECOND DOSE
     Route: 048
     Dates: start: 200702, end: 200707
  3. XYREM [Suspect]
     Active Substance: SODIUM OXYBATE
     Dosage: 3.5 G, TID
     Route: 048
     Dates: start: 201405
  4. XYREM [Suspect]
     Active Substance: SODIUM OXYBATE
     Indication: SLEEP DISORDER
     Dosage: 3.5 G, BID
     Route: 048
     Dates: start: 200408, end: 2005
  5. XYREM [Suspect]
     Active Substance: SODIUM OXYBATE
     Dosage: DOSE ADJUSTMENTS
     Route: 048
  6. XYREM [Suspect]
     Active Substance: SODIUM OXYBATE
     Dosage: 3.5 G, BID
     Route: 048
     Dates: start: 200604, end: 2006
  7. XYREM [Suspect]
     Active Substance: SODIUM OXYBATE
     Dosage: 2 G, THIRD DOSE
     Route: 048
     Dates: start: 200702, end: 200707

REACTIONS (4)
  - Fibromuscular dysplasia [Unknown]
  - Renal surgery [Not Recovered/Not Resolved]
  - Congenital renal disorder [Not Recovered/Not Resolved]
  - Renal artery stenosis [Recovered/Resolved]

NARRATIVE: CASE EVENT DATE: 201302
